FAERS Safety Report 5468715-4 (Version None)
Quarter: 2007Q3

REPORT INFORMATION
  Report Type: 
  Country: None (occurrence: None)
  Receive Date: 20070926
  Receipt Date: 20070917
  Transmission Date: 20080115
  Serious: Yes (Other)
  Sender: FDA-Public Use
  Company Number: DE-PFIZER INC-2007077606

PATIENT
  Sex: Male

DRUGS (10)
  1. REVATIO [Suspect]
     Indication: PULMONARY HYPERTENSION
     Route: 048
  2. INSULIN [Concomitant]
     Route: 058
  3. DILTIAZEM [Concomitant]
     Route: 048
  4. TRACLEER [Concomitant]
     Route: 048
  5. PRAVASTATIN [Concomitant]
     Route: 048
  6. RAMIPRIL [Concomitant]
     Route: 048
  7. MARCUMAR [Concomitant]
     Route: 048
  8. ALLOPURINOL [Concomitant]
     Route: 048
  9. CARVEDILOL [Concomitant]
     Route: 048
  10. TORSEMIDE [Concomitant]
     Route: 048

REACTIONS (1)
  - VISUAL ACUITY REDUCED [None]
